FAERS Safety Report 9009711 (Version 1)
Quarter: 2013Q1

REPORT INFORMATION
  Report Type: Spontaneous
  Country: CZ (occurrence: CZ)
  Receive Date: 20130110
  Receipt Date: 20130110
  Transmission Date: 20140127
  Serious: Yes (Other)
  Sender: FDA-Public Use
  Company Number: CZ-UCBSA-069941

PATIENT
  Age: 41 Year
  Sex: Female

DRUGS (4)
  1. CIMZIA [Suspect]
     Indication: RHEUMATOID ARTHRITIS
     Dates: start: 20120719
  2. METHOTREXATE [Concomitant]
  3. RECOXA [Concomitant]
  4. HELICID [Concomitant]

REACTIONS (1)
  - Psoriasis [Not Recovered/Not Resolved]
